FAERS Safety Report 10907938 (Version 1)
Quarter: 2015Q1

REPORT INFORMATION
  Report Type: Spontaneous
  Country: GB (occurrence: None)
  Receive Date: 20150309
  Receipt Date: 20150309
  Transmission Date: 20150721
  Serious: Yes (Other)
  Sender: FDA-Public Use
  Company Number: GB-DEXPHARM-20150145

PATIENT
  Age: 51 Year
  Sex: Male

DRUGS (1)
  1. OMEPRAZOLE. [Suspect]
     Active Substance: OMEPRAZOLE
     Dosage: 20 MG, ONCE DAILY?20 MG MILLIGRAM(S)?SEP. DOSAGES / INTERVAL: 1 IN 1 DAYS

REACTIONS (5)
  - Neoplasm progression [None]
  - Tumour compression [None]
  - Metastases to lung [None]
  - Renal cell carcinoma [None]
  - Pulmonary mass [None]
